FAERS Safety Report 4717102-2 (Version None)
Quarter: 2005Q3

REPORT INFORMATION
  Report Type: 
  Country: None (occurrence: None)
  Receive Date: 20050719
  Receipt Date: 20050621
  Transmission Date: 20060218
  Serious: Yes (Death, Life-Threatening, Hospitalization)
  Sender: FDA-Public Use
  Company Number: PHBS2005BR09024

PATIENT
  Age: 82 Year
  Sex: Male

DRUGS (2)
  1. STARLIX [Suspect]
     Indication: DIABETES MELLITUS
     Dosage: 240 MG, QD
     Route: 048
  2. INSULIN [Concomitant]

REACTIONS (16)
  - ABDOMINAL DISTENSION [None]
  - BLOOD PRESSURE ABNORMAL [None]
  - COLECTOMY TOTAL [None]
  - DIVERTICULUM INTESTINAL [None]
  - GASTRITIS [None]
  - HAEMOGLOBIN DECREASED [None]
  - INTESTINAL FISTULA [None]
  - INTESTINAL HAEMORRHAGE [None]
  - LUNG INFECTION [None]
  - MULTI-ORGAN FAILURE [None]
  - PNEUMONIA [None]
  - PYREXIA [None]
  - RENAL FAILURE [None]
  - SEPSIS [None]
  - VOMITING [None]
  - WOUND DEHISCENCE [None]
